FAERS Safety Report 7416284-1 (Version None)
Quarter: 2011Q2

REPORT INFORMATION
  Report Type: 
  Country: None (occurrence: None)
  Receive Date: 20110414
  Receipt Date: 20110411
  Transmission Date: 20111010
  Serious: Yes (Hospitalization, Other)
  Sender: FDA-Public Use
  Company Number: GR-ELI_LILLY_AND_COMPANY-GR201104003152

PATIENT
  Age: 51 Year
  Sex: Male
  Weight: 78 kg

DRUGS (4)
  1. CISPLATIN [Concomitant]
     Indication: LUNG ADENOCARCINOMA
     Dosage: 148 MG, SINGLE
     Route: 042
     Dates: start: 20110324, end: 20110324
  2. FOLIC ACID [Concomitant]
     Dosage: 400 UG, QD
     Dates: start: 20110317, end: 20110330
  3. ALIMTA [Suspect]
     Indication: LUNG ADENOCARCINOMA
     Dosage: 985 MG, SINGLE
     Route: 042
     Dates: start: 20110324, end: 20110324
  4. VIT B12 [Concomitant]
     Dosage: 1000 UG, UNK
     Route: 030
     Dates: start: 20110317

REACTIONS (2)
  - THROMBOCYTOPENIA [None]
  - MYOCARDIAL INFARCTION [None]
